FAERS Safety Report 9337757 (Version 1)
Quarter: 2013Q2

REPORT INFORMATION
  Report Type: Spontaneous
  Country: CN (occurrence: CN)
  Receive Date: 20130607
  Receipt Date: 20130607
  Transmission Date: 20140414
  Serious: Yes (Hospitalization, Other)
  Sender: FDA-Public Use
  Company Number: CN-BAXTER-2013BAX020900

PATIENT
  Age: 42 Year
  Sex: Male

DRUGS (2)
  1. HOLOXAN [Suspect]
     Indication: CHEMOTHERAPY
     Route: 041
     Dates: start: 20120510, end: 20120523
  2. ADRIAMYCIN [Suspect]
     Indication: PRODUCT USED FOR UNKNOWN INDICATION
     Route: 065
     Dates: start: 20120510, end: 20120523

REACTIONS (4)
  - Bone marrow failure [Recovering/Resolving]
  - Hepatocellular injury [Recovering/Resolving]
  - Liver injury [Recovering/Resolving]
  - White blood cell count decreased [Unknown]
